FAERS Safety Report 5779544-6 (Version None)
Quarter: 2008Q2

REPORT INFORMATION
  Report Type: 
  Country: None (occurrence: None)
  Receive Date: 20080619
  Receipt Date: 20070501
  Transmission Date: 20081010
  Serious: No
  Sender: FDA-Public Use
  Company Number: US-ASTRAZENECA-2005UW10228

PATIENT
  Age: 84 Year
  Sex: Female
  Weight: 99.8 kg

DRUGS (5)
  1. ATACAND [Suspect]
     Indication: HYPERTENSION
     Route: 048
  2. ATACAND [Suspect]
     Route: 048
     Dates: start: 20050101
  3. INDERAL [Concomitant]
  4. GLIPIZIDE [Concomitant]
  5. FOROSAMIDE [Concomitant]

REACTIONS (6)
  - ABDOMINAL PAIN LOWER [None]
  - ARTHRALGIA [None]
  - FLATULENCE [None]
  - FREQUENT BOWEL MOVEMENTS [None]
  - NAUSEA [None]
  - OEDEMA PERIPHERAL [None]
